FAERS Safety Report 4715622-8 (Version None)
Quarter: 2005Q3

REPORT INFORMATION
  Report Type: 
  Country: None (occurrence: None)
  Receive Date: 20050713
  Receipt Date: 20050705
  Transmission Date: 20060218
  Serious: Yes (Hospitalization, Other)
  Sender: FDA-Public Use
  Company Number: 2005-02-0168

PATIENT
  Age: 58 Year
  Sex: Male
  Weight: 74 kg

DRUGS (6)
  1. PEG-INTRON [Suspect]
     Indication: HEPATITIS C
     Dosage: 150 MCG QW SUBCUTANEOUS
     Route: 058
     Dates: start: 20050107, end: 20050128
  2. REBETOL [Suspect]
     Indication: HEPATITIS C
     Dosage: 800 MG ORAL
     Route: 048
     Dates: start: 20050107, end: 20050131
  3. URSODIOL [Concomitant]
  4. CONIEL (BENIDIPINE HCL) [Concomitant]
  5. BLOPRESS (CANDESARTAN CILEXETIL) [Concomitant]
  6. STRONGER NOE MINOPHAGEN C [Concomitant]

REACTIONS (13)
  - CEREBRAL HAEMORRHAGE [None]
  - COGNITIVE DISORDER [None]
  - DECREASED ACTIVITY [None]
  - DECREASED APPETITE [None]
  - DEMENTIA [None]
  - DEPRESSION [None]
  - HYPERTENSION [None]
  - LEUKOARAIOSIS [None]
  - NAUSEA [None]
  - ORAL INTAKE REDUCED [None]
  - SPEECH DISORDER [None]
  - THROMBOTIC STROKE [None]
  - VASCULITIS [None]
